FAERS Safety Report 13389856 (Version 2)
Quarter: 2017Q2

REPORT INFORMATION
  Report Type: Spontaneous
  Country: JP (occurrence: JP)
  Receive Date: 20170331
  Receipt Date: 20170418
  Transmission Date: 20170830
  Serious: Yes (Life-Threatening)
  Sender: FDA-Public Use
  Company Number: JP-ROCHE-1912644

PATIENT
  Age: 85 Year
  Sex: Female

DRUGS (4)
  1. BONVIVA [Suspect]
     Active Substance: IBANDRONATE SODIUM
     Indication: OSTEOPOROSIS
     Dosage: DOSAGE IS UNCERTAIN.
     Route: 042
     Dates: start: 20151003, end: 20170213
  2. EDIROL [Suspect]
     Active Substance: ELDECALCITOL
     Indication: OSTEOPOROSIS
     Route: 048
     Dates: start: 201509, end: 20170213
  3. MIRCERA [Suspect]
     Active Substance: METHOXY POLYETHYLENE GLYCOL-EPOETIN BETA
     Indication: NEPHROGENIC ANAEMIA
     Dosage: DOSAGE IS UNCERTAIN.
     Route: 065
     Dates: start: 20170220
  4. GLAKAY [Suspect]
     Active Substance: MENATETRENONE
     Indication: PRODUCT USED FOR UNKNOWN INDICATION
     Route: 048
     Dates: start: 20150926, end: 20170213

REACTIONS (3)
  - Hypercalcaemia [Recovering/Resolving]
  - Hypercalcaemic nephropathy [Recovered/Resolved with Sequelae]
  - Nephrogenic anaemia [Unknown]

NARRATIVE: CASE EVENT DATE: 20161205
